FAERS Safety Report 12144332 (Version 1)
Quarter: 2016Q1

REPORT INFORMATION
  Report Type: Spontaneous
  Country: FI (occurrence: None)
  Receive Date: 20160303
  Receipt Date: 20160303
  Transmission Date: 20160526
  Serious: Yes (Life-Threatening, Hospitalization, Disabling, Other)
  Sender: FDA-Public Use
  Company Number: None

PATIENT
  Age: 46 Year
  Sex: Male
  Weight: 94 kg

DRUGS (5)
  1. CHANTIX [Suspect]
     Active Substance: VARENICLINE TARTRATE
     Indication: DRUG WITHDRAWAL SYNDROME
     Dosage: AS ADVICE ONCE DAILY TAKEN BY MOUTH
     Route: 048
     Dates: start: 20070701, end: 20071107
  2. LEVOTYROXINE [Concomitant]
  3. OMEGA 3 [Concomitant]
     Active Substance: OMEGA-3 FATTY ACIDS
  4. EFFEXOR [Concomitant]
     Active Substance: VENLAFAXINE HYDROCHLORIDE
  5. D-VITAMIN [Concomitant]

REACTIONS (4)
  - Brain injury [None]
  - Akathisia [None]
  - Hypothyroidism [None]
  - Hormone level abnormal [None]

NARRATIVE: CASE EVENT DATE: 20071110
